FAERS Safety Report 22089799 (Version 6)
Quarter: 2023Q2

REPORT INFORMATION
  Report Type: Report from Study
  Country: AR (occurrence: AR)
  Receive Date: 20230313
  Receipt Date: 20230630
  Transmission Date: 20230721
  Serious: Yes (Other)
  Sender: FDA-Public Use
  Company Number: AR-002147023-NVSC2022AR229876

PATIENT
  Age: 72 Year
  Sex: Male

DRUGS (2)
  1. COSENTYX [Suspect]
     Active Substance: SECUKINUMAB
     Indication: Psoriasis
     Dosage: 300 MG, QMO
     Route: 058
     Dates: start: 20220914
  2. COSENTYX [Suspect]
     Active Substance: SECUKINUMAB
     Indication: Pemphigoid

REACTIONS (6)
  - Pemphigoid [Recovering/Resolving]
  - Injection site pain [Unknown]
  - Psoriasis [Unknown]
  - Pruritus [Unknown]
  - Blister [Recovering/Resolving]
  - Product use in unapproved indication [Unknown]

NARRATIVE: CASE EVENT DATE: 20230501
